FAERS Safety Report 19469030 (Version 2)
Quarter: 2023Q4

REPORT INFORMATION
  Report Type: Other
  Country: FR (occurrence: None)
  Receive Date: 20210628
  Receipt Date: 20231016
  Transmission Date: 20240110
  Serious: Yes (Death, Other)
  Sender: FDA-Public Use
  Company Number: FR-ROCHE-2857010

PATIENT

DRUGS (6)
  1. RITUXIMAB [Suspect]
     Active Substance: RITUXIMAB
     Indication: Chronic lymphocytic leukaemia
     Route: 065
  2. OBINUTUZUMAB [Suspect]
     Active Substance: OBINUTUZUMAB
     Indication: Chronic lymphocytic leukaemia
     Dosage: OVER 6 X 4-WEEKLY CYCLES
     Route: 065
  3. IBRUTINIB [Suspect]
     Active Substance: IBRUTINIB
     Indication: Chronic lymphocytic leukaemia
     Dosage: FOR 9 MONTHS
     Route: 048
  4. FLUDARABINE [Suspect]
     Active Substance: FLUDARABINE PHOSPHATE
     Indication: Chronic lymphocytic leukaemia
     Route: 042
  5. CYCLOPHOSPHAMIDE [Suspect]
     Active Substance: CYCLOPHOSPHAMIDE
     Indication: Chronic lymphocytic leukaemia
     Route: 042
  6. VENETOCLAX [Suspect]
     Active Substance: VENETOCLAX
     Indication: Chronic lymphocytic leukaemia
     Route: 065

REACTIONS (23)
  - Sepsis [Fatal]
  - Neutropenia [Unknown]
  - Bronchopulmonary aspergillosis [Unknown]
  - Hodgkin^s disease [Unknown]
  - Atrial fibrillation [Unknown]
  - Squamous cell carcinoma of the oral cavity [Unknown]
  - Lymphopenia [Unknown]
  - Tachycardia [Unknown]
  - Hypertension [Unknown]
  - Hyperthermia [Unknown]
  - Pneumocystis jirovecii pneumonia [Unknown]
  - Squamous cell carcinoma of skin [Unknown]
  - Macrophage activation [Unknown]
  - Neoplasm [Unknown]
  - Metastatic neoplasm [Unknown]
  - Prostate cancer metastatic [Unknown]
  - Myelodysplastic syndrome [Unknown]
  - Cerebrovascular accident [Unknown]
  - Acute myeloid leukaemia [Unknown]
  - Infection [Fatal]
  - Epstein-Barr virus infection [Fatal]
  - COVID-19 [Fatal]
  - Haemophagocytic lymphohistiocytosis [Fatal]
